FAERS Safety Report 10654003 (Version 2)
Quarter: 2023Q2

REPORT INFORMATION
  Report Type: Other
  Country: CH (occurrence: None)
  Receive Date: 20141216
  Receipt Date: 20230608
  Transmission Date: 20230721
  Serious: Yes (Other)
  Sender: FDA-Public Use
  Company Number: CH-ROCHE-1506449

PATIENT
  Age: 78 Year
  Sex: Male

DRUGS (1)
  1. VEMURAFENIB [Suspect]
     Active Substance: VEMURAFENIB
     Indication: Metastatic malignant melanoma
     Route: 065
     Dates: start: 201206

REACTIONS (1)
  - Recall phenomenon [Recovered/Resolved]
